FAERS Safety Report 8507039-5 (Version None)
Quarter: 2012Q3

REPORT INFORMATION
  Report Type: 
  Country: None (occurrence: None)
  Receive Date: 20120712
  Receipt Date: 20120419
  Transmission Date: 20120928
  Serious: No
  Sender: FDA-Public Use
  Company Number: US-MYLANLABS-2012S1007603

PATIENT
  Sex: Female

DRUGS (3)
  1. THIOTHIXENE [Suspect]
     Indication: SCHIZOPHRENIA, PARANOID TYPE
     Dates: start: 20111201, end: 20120201
  2. DIOVAN HCT [Concomitant]
     Dosage: 160MG/12.5MG
  3. MOTRIN [Concomitant]

REACTIONS (3)
  - DRUG WITHDRAWAL SYNDROME [None]
  - DECREASED INTEREST [None]
  - TACHYPHRENIA [None]
